FAERS Safety Report 11459522 (Version 1)
Quarter: 2015Q3

REPORT INFORMATION
  Report Type: Spontaneous
  Country: US (occurrence: US)
  Receive Date: 20150904
  Receipt Date: 20150904
  Transmission Date: 20151125
  Serious: No
  Sender: FDA-Public Use
  Company Number: US-TARO-2014TAR00408

PATIENT
  Age: 99 Year
  Sex: Male
  Weight: 73.47 kg

DRUGS (3)
  1. WARFARIN SODIUM TABLETS USP 2MG [Suspect]
     Active Substance: WARFARIN SODIUM
     Indication: TRANSIENT ISCHAEMIC ATTACK
     Dosage: 2 MG, 5X/WEEK
     Route: 048
     Dates: start: 2009, end: 20140923
  2. UNKNOWN BLOOD PRESSURE MEDICATION [Concomitant]
     Active Substance: UNSPECIFIED INGREDIENT
     Dosage: UNK, 1X/DAY
  3. WARFARIN SODIUM TABLETS USP 2MG [Suspect]
     Active Substance: WARFARIN SODIUM
     Dosage: 3 MG, 2X/WEEK
     Route: 048
     Dates: start: 2009, end: 20140923

REACTIONS (1)
  - International normalised ratio increased [Unknown]

NARRATIVE: CASE EVENT DATE: 20140918
